FAERS Safety Report 19102113 (Version 1)
Quarter: 2021Q2

REPORT INFORMATION
  Report Type: Spontaneous
  Country: JP (occurrence: JP)
  Receive Date: 20210407
  Receipt Date: 20210407
  Transmission Date: 20210717
  Serious: Yes (Death)
  Sender: FDA-Public Use
  Company Number: JP-ROCHE-2802954

PATIENT
  Age: 9 Decade

DRUGS (2)
  1. TECENTRIQ [Suspect]
     Active Substance: ATEZOLIZUMAB
     Indication: HEPATOCELLULAR CARCINOMA
     Dosage: SINGLE DOSE ADMINISTRATION
     Route: 041
     Dates: start: 20210318, end: 20210318
  2. AVASTIN [Suspect]
     Active Substance: BEVACIZUMAB
     Indication: HEPATOCELLULAR CARCINOMA
     Dosage: SINGLE DOSE ADMINISTRATION
     Route: 041
     Dates: start: 20210318, end: 20210318

REACTIONS (2)
  - Hepatocellular carcinoma [Fatal]
  - Generalised oedema [Not Recovered/Not Resolved]

NARRATIVE: CASE EVENT DATE: 20210323
